FAERS Safety Report 16235545 (Version 1)
Quarter: 2019Q2

REPORT INFORMATION
  Report Type: Spontaneous
  Country: US (occurrence: US)
  Receive Date: 20190424
  Receipt Date: 20190424
  Transmission Date: 20190711
  Serious: No
  Sender: FDA-Public Use
  Company Number: US-009507513-1904USA010778

PATIENT
  Age: 42 Year
  Sex: Female

DRUGS (2)
  1. NEXPLANON [Suspect]
     Active Substance: ETONOGESTREL
     Dosage: 1 DOSAGE FORM
     Route: 059
     Dates: start: 20190417
  2. NEXPLANON [Suspect]
     Active Substance: ETONOGESTREL
     Dosage: 1 UNK
     Route: 059
     Dates: start: 20190417

REACTIONS (3)
  - Implant site pain [Unknown]
  - Complication of device insertion [Recovered/Resolved]
  - Implant site bruising [Unknown]

NARRATIVE: CASE EVENT DATE: 20190417
